FAERS Safety Report 6252202-X (Version None)
Quarter: 2009Q2

REPORT INFORMATION
  Report Type: 
  Country: None (occurrence: None)
  Receive Date: 20090629
  Receipt Date: 20090618
  Transmission Date: 20091009
  Serious: Yes (Other)
  Sender: FDA-Public Use
  Company Number: 2009EU002374

PATIENT
  Age: 29 Year
  Sex: Female

DRUGS (3)
  1. TACROLIMUS [Suspect]
     Indication: RENAL TRANSPLANT
     Dosage: /D
  2. PREDNISOLONE [Suspect]
     Indication: RENAL TRANSPLANT
     Dosage: /D
  3. MYCOPHENOLATE MOFETIL [Suspect]
     Indication: RENAL TRANSPLANT
     Dosage: /D

REACTIONS (10)
  - BACTERIAL PYELONEPHRITIS [None]
  - HYDRONEPHROSIS [None]
  - KIDNEY TRANSPLANT REJECTION [None]
  - MYCOBACTERIAL INFECTION [None]
  - PERITONEAL DIALYSIS [None]
  - SEPTIC SHOCK [None]
  - STAPHYLOCOCCAL INFECTION [None]
  - URETERIC STENOSIS [None]
  - URINARY TRACT INFECTION [None]
  - VASCULAR ACCESS COMPLICATION [None]
